FAERS Safety Report 5140946-2 (Version None)
Quarter: 2006Q4

REPORT INFORMATION
  Report Type: 
  Country: None (occurrence: None)
  Receive Date: 20061025
  Receipt Date: 20061025
  Transmission Date: 20070319
  Serious: Yes (Hospitalization)
  Sender: FDA-Public Use
  Company Number: None

PATIENT
  Age: 32 Year
  Sex: Male
  Weight: 62.1428 kg

DRUGS (1)
  1. DIVALPROEX SODIUM [Suspect]
     Dosage: 500 MG Q AM 1000 MG QHS
     Dates: start: 20060308

REACTIONS (1)
  - PANCREATITIS ACUTE [None]
